FAERS Safety Report 9225175 (Version 1)
Quarter: 2013Q2

REPORT INFORMATION
  Report Type: Spontaneous
  Country: US (occurrence: None)
  Receive Date: 20130410
  Receipt Date: 20130410
  Transmission Date: 20140414
  Serious: Yes (Other)
  Sender: FDA-Public Use
  Company Number: None

PATIENT
  Age: 49 Year
  Sex: Female
  Weight: 68.04 kg

DRUGS (2)
  1. LEXISCAN [Suspect]
     Indication: CARDIAC STRESS TEST
  2. LEXISCAN [Suspect]
     Indication: HEART RATE DECREASED

REACTIONS (8)
  - Dyspnoea [None]
  - Paraesthesia [None]
  - Paraesthesia [None]
  - Paralysis [None]
  - Hypersensitivity [None]
  - Musculoskeletal stiffness [None]
  - Speech disorder [None]
  - Feeling abnormal [None]
